FAERS Safety Report 4825544-X (Version None)
Quarter: 2005Q4

REPORT INFORMATION
  Report Type: 
  Country: None (occurrence: None)
  Receive Date: 20051111
  Receipt Date: 20050826
  Transmission Date: 20060501
  Serious: No
  Sender: FDA-Public Use
  Company Number: US-GLAXOSMITHKLINE-A0571977A

PATIENT
  Sex: Female

DRUGS (1)
  1. AVODART [Suspect]

REACTIONS (1)
  - DRUG EXPOSURE DURING PREGNANCY [None]
